FAERS Safety Report 4372136-5 (Version None)
Quarter: 2004Q2

REPORT INFORMATION
  Report Type: 
  Country: None (occurrence: None)
  Receive Date: 20040602
  Receipt Date: 20040517
  Transmission Date: 20050107
  Serious: No
  Sender: FDA-Public Use
  Company Number: 2004AP02402

PATIENT
  Age: 77 Year
  Sex: Male

DRUGS (15)
  1. IRESSA [Suspect]
     Indication: LUNG ADENOCARCINOMA
     Dosage: 250 MG DAILY PO
     Route: 048
     Dates: start: 20031014, end: 20040108
  2. IRESSA [Suspect]
     Indication: NON-SMALL CELL LUNG CANCER
     Dosage: 250 MG DAILY PO
     Route: 048
     Dates: start: 20031014, end: 20040108
  3. MEDICON [Concomitant]
  4. BISOLVON [Concomitant]
  5. LASIX [Concomitant]
  6. ALDACTONE [Concomitant]
  7. MITOMYCIN-C BULK POWDER [Concomitant]
  8. VINDESINE [Concomitant]
  9. CISPLATIN [Concomitant]
  10. ETOPOSIDE [Concomitant]
  11. PACLITAXEL [Concomitant]
  12. CARBOPLATIN [Concomitant]
  13. VINORELBINE TARTRATE [Concomitant]
  14. GEMICITABINE [Concomitant]
  15. RADIATION THERAPY [Concomitant]

REACTIONS (4)
  - CRYPTOGENIC ORGANIZING PNEUMONIA [None]
  - INTERSTITIAL LUNG DISEASE [None]
  - LIVER DISORDER [None]
  - RASH [None]
